FAERS Safety Report 5396644-3 (Version None)
Quarter: 2007Q3

REPORT INFORMATION
  Report Type: 
  Country: None (occurrence: None)
  Receive Date: 20070725
  Receipt Date: 20070719
  Transmission Date: 20080115
  Serious: Yes (Death)
  Sender: FDA-Public Use
  Company Number: A0666113A

PATIENT
  Sex: Female

DRUGS (4)
  1. AVANDIA [Suspect]
     Route: 048
  2. GLYBURIDE [Suspect]
     Route: 065
  3. INSULIN [Suspect]
  4. UNSPECIFIED MEDICATION [Suspect]
     Route: 065

REACTIONS (1)
  - DEATH [None]
